FAERS Safety Report 6724383-2 (Version None)
Quarter: 2010Q2

REPORT INFORMATION
  Report Type: 
  Country: None (occurrence: None)
  Receive Date: 20100513
  Receipt Date: 20100503
  Transmission Date: 20101027
  Serious: Yes (Hospitalization, Other)
  Sender: FDA-Public Use
  Company Number: PHHY2010US29254

PATIENT
  Sex: Female

DRUGS (9)
  1. NEORAL [Suspect]
     Dosage: 125 MG, BID
  2. NEORAL [Suspect]
     Dosage: 50 MG AM, 25 MG PM
  3. COZAAR [Suspect]
  4. CLONIDINE [Suspect]
  5. BYSTOLIC [Suspect]
  6. PREDNISONE [Concomitant]
  7. CELLCEPT [Concomitant]
  8. RENVELA [Concomitant]
  9. PROCRIT [Concomitant]

REACTIONS (17)
  - ACIDOSIS [None]
  - ASTHMA [None]
  - BLOOD PRESSURE INCREASED [None]
  - CELLULITIS [None]
  - DECREASED APPETITE [None]
  - DIARRHOEA [None]
  - DIZZINESS [None]
  - FATIGUE [None]
  - FEELING ABNORMAL [None]
  - GOUT [None]
  - NASOPHARYNGITIS [None]
  - OXYGEN SATURATION DECREASED [None]
  - PNEUMOCYSTIS JIROVECI PNEUMONIA [None]
  - SINUSITIS [None]
  - STRESS FRACTURE [None]
  - VOMITING [None]
  - WEIGHT DECREASED [None]
